FAERS Safety Report 4401820-X (Version None)
Quarter: 2004Q3

REPORT INFORMATION
  Report Type: 
  Country: None (occurrence: None)
  Receive Date: 20040714
  Receipt Date: 20040702
  Transmission Date: 20050211
  Serious: Yes (Hospitalization)
  Sender: FDA-Public Use
  Company Number: 04P-163-0249694-00

PATIENT
  Age: 55 Year
  Sex: Male
  Weight: 125.1928 kg

DRUGS (3)
  1. OMNICEF [Suspect]
     Indication: ACUTE SINUSITIS
     Dosage: 300 MG, 2 IN 1 D
     Dates: start: 20031024
  2. LOTREL [Concomitant]
  3. HYDROCHLOROTHIAZIDE [Concomitant]

REACTIONS (4)
  - HAEMODIALYSIS [None]
  - NEPHRITIS INTERSTITIAL [None]
  - RENAL FAILURE ACUTE [None]
  - RENAL TUBULAR NECROSIS [None]
